FAERS Safety Report 4359313-4 (Version None)
Quarter: 2004Q2

REPORT INFORMATION
  Report Type: 
  Country: None (occurrence: None)
  Receive Date: 20040512
  Receipt Date: 20040430
  Transmission Date: 20050107
  Serious: Yes (Other)
  Sender: FDA-Public Use
  Company Number: 232159K04USA

PATIENT
  Age: 66 Year
  Sex: Male

DRUGS (7)
  1. REBIF [Suspect]
     Indication: MULTIPLE SCLEROSIS
     Dosage: 3 IN 1 WEEKS, SUBCUTANEOUS
     Route: 058
     Dates: start: 20030901
  2. TAMSULOSIN [Concomitant]
  3. OLANZAPINE [Concomitant]
  4. METOPROLOL SUCCINATE [Concomitant]
  5. LEVOTHYROXINE SODIUM [Concomitant]
  6. LATANOPROST [Concomitant]
  7. CLONAZEPAM [Concomitant]

REACTIONS (3)
  - EYE HAEMORRHAGE [None]
  - VISION BLURRED [None]
  - VISUAL ACUITY REDUCED [None]
